FAERS Safety Report 7049099-7 (Version None)
Quarter: 2010Q4

REPORT INFORMATION
  Report Type: 
  Country: None (occurrence: None)
  Receive Date: 20101007
  Receipt Date: 20100923
  Transmission Date: 20110411
  Serious: Yes (Hospitalization)
  Sender: FDA-Public Use
  Company Number: 019261

PATIENT
  Sex: Female
  Weight: 87 kg

DRUGS (8)
  1. CIMZIA [Suspect]
     Indication: RHEUMATOID ARTHRITIS
     Dosage: SUBCUTANEOUS
     Route: 058
     Dates: start: 20100101
  2. CARTIA /000012701/ [Concomitant]
  3. CYMBALTA [Concomitant]
  4. LYRICA [Concomitant]
  5. DYAZIDE [Concomitant]
  6. EYE DROPS [Concomitant]
  7. NEXIUM [Concomitant]
  8. ZANTAC /00550802/ [Concomitant]

REACTIONS (3)
  - FALL [None]
  - FOOT FRACTURE [None]
  - GAIT DISTURBANCE [None]
